FAERS Safety Report 9797084 (Version 1)
Quarter: 2014Q1

REPORT INFORMATION
  Report Type: Report from Study
  Country: US (occurrence: US)
  Receive Date: 20140106
  Receipt Date: 20140106
  Transmission Date: 20141002
  Serious: Yes (Other)
  Sender: FDA-Public Use
  Company Number: US-ROCHE-1328181

PATIENT
  Age: 83 Year
  Sex: Female

DRUGS (15)
  1. LUCENTIS [Suspect]
     Indication: DIABETIC RETINAL OEDEMA
     Dosage: OU
     Route: 050
  2. LUCENTIS [Suspect]
     Indication: CYSTOID MACULAR OEDEMA
  3. AVASTIN [Suspect]
     Indication: PRODUCT USED FOR UNKNOWN INDICATION
     Dosage: OD
     Route: 050
  4. CARVEDILOL [Concomitant]
     Dosage: WITH FOOD
     Route: 048
  5. ALPHAGAN [Concomitant]
     Dosage: OU, 0.15% EYE DROPS
     Route: 047
  6. AMLODIPINE [Concomitant]
     Route: 048
  7. AZOPT [Concomitant]
     Dosage: OU, 1% EYE DROPS
     Route: 047
  8. BENICAR [Concomitant]
     Route: 048
  9. BROMDAY [Concomitant]
     Dosage: OS AND OD
     Route: 047
  10. FUROSEMIDE [Concomitant]
     Dosage: 40 MG/5 ML
     Route: 048
  11. LEVOBUNOLOL [Concomitant]
     Dosage: OU, 0.5 %
     Route: 047
  12. METOCLOPRAMIDE [Concomitant]
     Route: 048
  13. OPTIVE [Concomitant]
     Dosage: OU?0.5 - 0.9 %
     Route: 047
  14. PREDNISONE [Concomitant]
     Route: 048
  15. SALBUTAMOL/SALBUTAMOL SULFATE [Concomitant]
     Route: 048

REACTIONS (3)
  - Macular oedema [Unknown]
  - Vision blurred [Unknown]
  - Retinal haemorrhage [Unknown]
